FAERS Safety Report 19087798 (Version 1)
Quarter: 2021Q2

REPORT INFORMATION
  Report Type: Spontaneous
  Country: US (occurrence: US)
  Receive Date: 20210402
  Receipt Date: 20210402
  Transmission Date: 20210717
  Serious: Yes (Other)
  Sender: FDA-Public Use
  Company Number: None

PATIENT
  Age: 53 Year
  Sex: Male
  Weight: 97.52 kg

DRUGS (9)
  1. DAILY MULTI VITAMIN + MINERAL [Concomitant]
  2. TKO TRADEMARK DELTA 8 INFUSED NERD ROPES BY TERP NATION [Suspect]
     Active Substance: .DELTA.8-TETRAHYDROCANNABINOL\HERBALS
     Indication: PAIN
     Dosage: ?          QUANTITY:200 MG MILLIGRAM(S);?
     Dates: start: 20210323, end: 20210323
  3. MELATONIN [Concomitant]
     Active Substance: MELATONIN
  4. DULOXETINE. [Concomitant]
     Active Substance: DULOXETINE
  5. ATORVASTATIN [Concomitant]
     Active Substance: ATORVASTATIN
  6. VITAMIN D [Concomitant]
     Active Substance: VITAMIN D NOS
  7. ESZOPICLONE. [Concomitant]
     Active Substance: ESZOPICLONE
  8. VITAMIN B COMPLEX [Concomitant]
     Active Substance: CYANOCOBALAMIN\DEXPANTHENOL\NIACINAMIDE\PYRIDOXINE HYDROCHLORIDE\RIBOFLAVIN 5^-PHOSPHATE SODIUM\THIAMINE HYDROCHLORIDE\VITAMIN B COMPLEX
  9. PROPRANOLOL [Concomitant]
     Active Substance: PROPRANOLOL HYDROCHLORIDE

REACTIONS (5)
  - Hallucination [None]
  - Sedation [None]
  - Confusional state [None]
  - Dissociative disorder [None]
  - Memory impairment [None]

NARRATIVE: CASE EVENT DATE: 20210323
